FAERS Safety Report 25818586 (Version 1)
Quarter: 2025Q3

REPORT INFORMATION
  Report Type: Spontaneous
  Country: US (occurrence: US)
  Receive Date: 20250918
  Receipt Date: 20250918
  Transmission Date: 20251020
  Serious: Yes (Other)
  Sender: BAYER HEALTHCARE PHARMACEUTICALS INC.
  Company Number: US-BAYER-2025A119920

PATIENT
  Age: 80 Year
  Sex: Male

DRUGS (10)
  1. NUBEQA [Suspect]
     Active Substance: DAROLUTAMIDE
     Indication: Prostate cancer stage IV
     Dosage: 600 MG, BID
     Dates: start: 2024, end: 20250908
  2. LYRICA [Concomitant]
     Active Substance: PREGABALIN
  3. ACETAMINOPHEN [Concomitant]
     Active Substance: ACETAMINOPHEN
  4. LOSARTAN POTASSIUM [Concomitant]
     Active Substance: LOSARTAN POTASSIUM
  5. METOPROLOL [Concomitant]
     Active Substance: METOPROLOL
  6. NEXIUM [Concomitant]
     Active Substance: ESOMEPRAZOLE MAGNESIUM
  7. CALCIUM [Concomitant]
     Active Substance: CALCIUM
  8. VITAMIN C [Concomitant]
     Active Substance: ASCORBIC ACID
  9. LUPRON [Concomitant]
     Active Substance: LEUPROLIDE ACETATE
     Dates: start: 2024
  10. ATORVASTATIN [Concomitant]
     Active Substance: ATORVASTATIN
     Indication: Blood cholesterol increased
     Dates: end: 202503

REACTIONS (3)
  - Metastases to peritoneum [None]
  - Blood cholesterol increased [None]
  - Blood triglycerides increased [None]

NARRATIVE: CASE EVENT DATE: 20250101
